FAERS Safety Report 7260377-9 (Version None)
Quarter: 2011Q1

REPORT INFORMATION
  Report Type: 
  Country: None (occurrence: None)
  Receive Date: 20110130
  Receipt Date: 20101020
  Transmission Date: 20110831
  Serious: No
  Sender: FDA-Public Use
  Company Number: US-ABBOTT-10P-163-0679684-00

PATIENT
  Age: 49 Year
  Sex: Female

DRUGS (6)
  1. HUMIRA [Suspect]
     Indication: PSORIATIC ARTHROPATHY
     Dates: start: 20100701
  2. LISINOPRIL [Concomitant]
     Indication: BLOOD PRESSURE
  3. CELEXA [Concomitant]
     Indication: DEPRESSION
  4. METFORMIN [Concomitant]
     Indication: DIABETES MELLITUS
  5. IBUTAMIN [Concomitant]
     Indication: ARTHRITIS
  6. OTHER MEDICATIONS [Concomitant]
     Indication: PRODUCT USED FOR UNKNOWN INDICATION

REACTIONS (3)
  - ALOPECIA [None]
  - RASH PRURITIC [None]
  - PSORIASIS [None]
